FAERS Safety Report 17680955 (Version 1)
Quarter: 2020Q2

REPORT INFORMATION
  Report Type: Spontaneous
  Country: GB (occurrence: GB)
  Receive Date: 20200417
  Receipt Date: 20200417
  Transmission Date: 20200714
  Serious: Yes (Other)
  Sender: FDA-Public Use
  Company Number: GB-MYLANLABS-2020M1038776

PATIENT
  Age: 6 Year
  Sex: Male

DRUGS (1)
  1. MONTELUKAST [Suspect]
     Active Substance: MONTELUKAST SODIUM
     Indication: ASTHMA
     Dosage: 4 MILLIGRAM
     Route: 048
     Dates: start: 20190301, end: 20200301

REACTIONS (3)
  - Affect lability [Recovering/Resolving]
  - Aggression [Recovering/Resolving]
  - Sleep terror [Recovering/Resolving]

NARRATIVE: CASE EVENT DATE: 20190301
